FAERS Safety Report 4871514-5 (Version None)
Quarter: 2005Q4

REPORT INFORMATION
  Report Type: 
  Country: None (occurrence: None)
  Receive Date: 20051229
  Receipt Date: 20051213
  Transmission Date: 20060501
  Serious: Yes (Hospitalization, Other)
  Sender: FDA-Public Use
  Company Number: US200512002314

PATIENT
  Age: 67 Year
  Sex: Female

DRUGS (5)
  1. FORTEO [Suspect]
     Indication: OSTEOPENIA
     Dates: start: 20040406, end: 20051129
  2. FERROUS SULFATE ^APS^ (FERROUS SULFATE) [Concomitant]
  3. WARFARIN SODIUM [Concomitant]
  4. FENTANYL [Concomitant]
  5. NEURONTIN [Concomitant]

REACTIONS (2)
  - GASTROINTESTINAL HAEMORRHAGE [None]
  - VAGINAL CANCER [None]
